FAERS Safety Report 20536497 (Version 1)
Quarter: 2022Q1

REPORT INFORMATION
  Report Type: Spontaneous
  Country: SG (occurrence: SG)
  Receive Date: 20220302
  Receipt Date: 20220302
  Transmission Date: 20220423
  Serious: Yes (Other)
  Sender: FDA-Public Use
  Company Number: SG-BAYER-2021A263825

PATIENT
  Age: 60 Year
  Sex: Female

DRUGS (1)
  1. RIVAROXABAN [Suspect]
     Active Substance: RIVAROXABAN
     Indication: Atrial fibrillation
     Dosage: UNK
     Route: 065

REACTIONS (8)
  - Circulatory collapse [Unknown]
  - Pulseless electrical activity [Unknown]
  - Haemodynamic instability [Unknown]
  - Atrial fibrillation [Unknown]
  - Haematoma infection [Unknown]
  - Intra-abdominal haematoma [Unknown]
  - Acute kidney injury [Unknown]
  - Mesenteric haematoma [Unknown]
